FAERS Safety Report 15896612 (Version 2)
Quarter: 2019Q1

REPORT INFORMATION
  Report Type: Report from Study
  Country: US (occurrence: US)
  Receive Date: 20190131
  Receipt Date: 20190206
  Transmission Date: 20190417
  Serious: No
  Sender: FDA-Public Use
  Company Number: US-ELI_LILLY_AND_COMPANY-US201901005808

PATIENT
  Age: 71 Year
  Sex: Female

DRUGS (4)
  1. INSULIN, LISPRO [Suspect]
     Active Substance: INSULIN LISPRO
     Dosage: 44 U, DAILY (PM)
     Route: 058
  2. INSULIN, LISPRO [Suspect]
     Active Substance: INSULIN LISPRO
     Dosage: 24 U, EACH MORNING (AM)
     Route: 058
  3. INSULIN, LISPRO [Suspect]
     Active Substance: INSULIN LISPRO
     Dosage: UNK UNK, UNKNOWN
     Route: 058
  4. INSULIN, LISPRO [Suspect]
     Active Substance: INSULIN LISPRO
     Indication: PRODUCT USED FOR UNKNOWN INDICATION
     Dosage: UNK UNK, UNKNOWN (TOOK LESS THAN PRESCRIBED DOSAGE IN 2017 AND IN EARLY SEP-2018)
     Route: 058

REACTIONS (3)
  - Glycosylated haemoglobin increased [Recovering/Resolving]
  - Intentional product misuse [Unknown]
  - Glycosylated haemoglobin increased [Unknown]

NARRATIVE: CASE EVENT DATE: 201712
